FAERS Safety Report 19912665 (Version 2)
Quarter: 2021Q4

REPORT INFORMATION
  Report Type: Spontaneous
  Country: JP (occurrence: JP)
  Receive Date: 20211004
  Receipt Date: 20211008
  Transmission Date: 20220303
  Serious: Yes (Other)
  Sender: FDA-Public Use
  Company Number: JP-MLMSERVICE-20210915-3088347-2

PATIENT
  Age: 74 Year
  Sex: Female
  Weight: 57.9 kg

DRUGS (2)
  1. CISPLATIN [Suspect]
     Active Substance: CISPLATIN
     Indication: Transitional cell cancer of the renal pelvis and ureter
     Dosage: UNK, CYCLIC (3 CYCLIC)
  2. GEMCITABINE HYDROCHLORIDE [Suspect]
     Active Substance: GEMCITABINE HYDROCHLORIDE
     Indication: Transitional cell cancer of the renal pelvis and ureter
     Dosage: UNK, CYCLIC (3 CYCLIC)

REACTIONS (3)
  - Duodenal ulcer [Unknown]
  - Decreased appetite [Unknown]
  - Vomiting [Unknown]
